FAERS Safety Report 21048747 (Version 14)
Quarter: 2023Q2

REPORT INFORMATION
  Report Type: Report from Study
  Country: US (occurrence: None)
  Receive Date: 20220706
  Receipt Date: 20230522
  Transmission Date: 20230722
  Serious: Yes (Hospitalization)
  Sender: FDA-Public Use
  Company Number: US-ROCHE-3116993

PATIENT
  Age: 60 Year
  Sex: Female
  Weight: 78.9 kg

DRUGS (16)
  1. CEVOSTAMAB [Suspect]
     Active Substance: CEVOSTAMAB
     Indication: Plasma cell myeloma
     Dosage: DOSE LAST STUDY DRUG ADMIN PRIOR AE IS 3.6 MG?START DATE OF MOST RECENT DOSE OF STUDY DRUG PRIOR TO
     Route: 042
     Dates: start: 20220608
  2. CEVOSTAMAB [Suspect]
     Active Substance: CEVOSTAMAB
     Dosage: DOSE LAST STUDY DRUG ADMIN PRIOR AE IS 3.6 MG?START DATE OF MOST RECENT DOSE OF STUDY DRUG PRIOR TO
     Route: 042
     Dates: start: 20220608
  3. CEVOSTAMAB [Suspect]
     Active Substance: CEVOSTAMAB
     Dosage: LAST STUDY DRUG ADMIN PRIOR SAE IS 252 MG?START DATE OF MOST RECENT DOSE OF STUDY DRUG PRIOR TO SAE
     Route: 042
     Dates: start: 20220608
  4. CEVOSTAMAB [Suspect]
     Active Substance: CEVOSTAMAB
     Dosage: DOSE LAST STUDY DRUG ADMIN PRIOR AE 252 MG?START DATE OF MOST RECENT DOSE OF STUDY DRUG PRIOR TO AE
     Route: 042
     Dates: start: 20220608
  5. TOCILIZUMAB [Suspect]
     Active Substance: TOCILIZUMAB
     Indication: Plasma cell myeloma
     Dosage: START DATE OF MOST RECENT DOSE OF STUDY DRUG PRIOR TO SAE  28/JUN/2022 9:47 PM?START DATE OF MOST RE
     Route: 042
     Dates: start: 20220608
  6. ROXICODONE [Concomitant]
     Active Substance: OXYCODONE HYDROCHLORIDE
     Indication: Pain
     Route: 048
     Dates: start: 20220608
  7. SODIUM CHLORIDE [Concomitant]
     Active Substance: SODIUM CHLORIDE
     Indication: Tachycardia
     Route: 042
     Dates: start: 20220608, end: 20220608
  8. MAGNESIUM SULFATE [Concomitant]
     Active Substance: MAGNESIUM SULFATE
     Indication: Hypomagnesaemia
     Route: 042
     Dates: start: 20220628, end: 20220628
  9. PHOSPHA 250 NEUTRAL [Concomitant]
     Active Substance: POTASSIUM PHOSPHATE, MONOBASIC\SODIUM PHOSPHATE, DIBASIC, ANHYDROUS\SODIUM PHOSPHATE, MONOBASIC, MON
     Indication: Hypophosphataemia
     Route: 048
     Dates: start: 20220609, end: 20220609
  10. PHOSPHA 250 NEUTRAL [Concomitant]
     Active Substance: POTASSIUM PHOSPHATE, MONOBASIC\SODIUM PHOSPHATE, DIBASIC, ANHYDROUS\SODIUM PHOSPHATE, MONOBASIC, MON
     Route: 048
     Dates: start: 20220609, end: 20220609
  11. BORTEZOMIB [Concomitant]
     Active Substance: BORTEZOMIB
     Indication: Neoplasm malignant
     Dates: start: 20220509, end: 20220511
  12. CISPLATIN [Concomitant]
     Active Substance: CISPLATIN
     Indication: Neoplasm malignant
     Dates: start: 20220509, end: 20220511
  13. DOXORUBICIN [Concomitant]
     Active Substance: DOXORUBICIN
     Indication: Neoplasm malignant
     Route: 065
     Dates: start: 20220509, end: 20220511
  14. CYCLOPHOSPHAMIDE [Concomitant]
     Active Substance: CYCLOPHOSPHAMIDE
     Indication: Neoplasm malignant
     Route: 065
     Dates: start: 20220509, end: 20220511
  15. ETOPOSIDE [Concomitant]
     Active Substance: ETOPOSIDE
     Indication: Neoplasm malignant
     Route: 065
     Dates: start: 20220509, end: 20220511
  16. ZOFRAN [Concomitant]
     Active Substance: ONDANSETRON HYDROCHLORIDE
     Indication: Nausea
     Route: 042
     Dates: start: 20220627, end: 20220627

REACTIONS (6)
  - Aspartate aminotransferase increased [Recovered/Resolved]
  - Cytokine release syndrome [Recovered/Resolved]
  - Cytokine release syndrome [Recovered/Resolved]
  - Cytokine release syndrome [Recovered/Resolved]
  - Adenovirus infection [Recovered/Resolved]
  - Pain [Recovered/Resolved]

NARRATIVE: CASE EVENT DATE: 20220608
